FAERS Safety Report 25035122 (Version 1)
Quarter: 2025Q1

REPORT INFORMATION
  Report Type: Report from Study
  Country: US (occurrence: US)
  Receive Date: 20250304
  Receipt Date: 20250304
  Transmission Date: 20250409
  Serious: Yes (Other)
  Sender: ABBVIE
  Company Number: US-ABBVIE-6158234

PATIENT
  Sex: Female

DRUGS (1)
  1. SKYRIZI [Suspect]
     Active Substance: RISANKIZUMAB-RZAA
     Indication: Product used for unknown indication
     Dosage: DOSAGE: 150 MG/ML
     Route: 058
     Dates: start: 2021

REACTIONS (4)
  - Intestinal obstruction [Unknown]
  - Therapeutic product effect decreased [Unknown]
  - Rash macular [Unknown]
  - Therapeutic response shortened [Unknown]
